FAERS Safety Report 6259697-6 (Version None)
Quarter: 2009Q4

REPORT INFORMATION
  Report Type: 
  Country: None (occurrence: None)
  Receive Date: 20090701
  Receipt Date: 20090618
  Transmission Date: 20100525
  Serious: Yes (Hospitalization)
  Sender: FDA-Public Use
  Company Number: WAES 0904USA01068

PATIENT
  Age: 71 Year
  Sex: Male

DRUGS (19)
  1. PRINIVIL [Suspect]
     Dosage: 20 MG/DAILY PO
     Route: 048
     Dates: start: 20090110
  2. FOSINOPRIL SODIUM [Suspect]
  3. NEBIVOLOL HCL [Suspect]
  4. TORSEMIDE [Suspect]
  5. LERCANIDIPINE [Suspect]
  6. PLACEBO [Suspect]
     Indication: TYPE 2 DIABETES MELLITUS
     Dates: end: 20090522
  7. LISINOPRIL [Suspect]
     Dosage: 20 MG DAILY PO
     Route: 048
     Dates: start: 20090110
  8. MIXTARD HUMAN 70/30 [Suspect]
     Indication: TYPE 2 DIABETES MELLITUS
     Dosage: SC
     Route: 058
     Dates: start: 20080723, end: 20090522
  9. SAXAGLIPTIN [Suspect]
     Indication: DIABETES MELLITUS
     Dosage: 2.5 MG PO
     Route: 048
     Dates: start: 20070730
  10. DOXAZOSIN MESYLATE [Suspect]
     Indication: HYPERTENSION
     Dosage: 2 MG DAILY PO
     Route: 048
     Dates: start: 20090114
  11. NOVAMINSULFON [Concomitant]
  12. TRAMADOL HCL [Concomitant]
  13. AMOXICILLIN AND CLAVULANATE POTSSIUM [Concomitant]
  14. ASPIRIN [Concomitant]
  15. BISOPROLOL FUMARATE [Concomitant]
  16. CEFUROXIME SODIUM [Concomitant]
  17. METOPROLOL TARTRATE [Concomitant]
  18. TORSEMIDE [Concomitant]
  19. XIPAMIDE [Concomitant]

REACTIONS (10)
  - ABDOMINAL PAIN UPPER [None]
  - ARTERIOVENOUS FISTULA THROMBOSIS [None]
  - BLOOD CREATININE INCREASED [None]
  - BLOOD UREA INCREASED [None]
  - LOSS OF CONSCIOUSNESS [None]
  - ORTHOSTATIC HYPOTENSION [None]
  - PLEURAL EFFUSION [None]
  - PNEUMONIA [None]
  - RENAL DISORDER [None]
  - SYNCOPE [None]
